FAERS Safety Report 5122084-8 (Version None)
Quarter: 2006Q4

REPORT INFORMATION
  Report Type: 
  Country: None (occurrence: None)
  Receive Date: 20061006
  Receipt Date: 20060928
  Transmission Date: 20070319
  Serious: Yes (Other)
  Sender: FDA-Public Use
  Company Number: 2006AP04551

PATIENT
  Age: 74 Year
  Sex: Female

DRUGS (5)
  1. ATACAND HCT [Suspect]
     Dosage: 16+12.5 MG DAILY
     Route: 048
  2. ATACAND [Suspect]
     Route: 048
     Dates: start: 19980101
  3. ATACAND [Suspect]
     Route: 048
  4. ZANTAC [Concomitant]
  5. ZANIDIP [Concomitant]

REACTIONS (2)
  - CATARACT [None]
  - COUGH [None]
